FAERS Safety Report 9514496 (Version 1)
Quarter: 2013Q3

REPORT INFORMATION
  Report Type: Report from Study
  Country: JP (occurrence: JP)
  Receive Date: 20130911
  Receipt Date: 20130911
  Transmission Date: 20140515
  Serious: Yes (Other)
  Sender: FDA-Public Use
  Company Number: JP-MERCK-1309JPN003174

PATIENT
  Age: 83 Year
  Sex: Female

DRUGS (5)
  1. REMERON [Suspect]
     Indication: DEPRESSION
     Dosage: 1 DF, QD
     Route: 048
     Dates: start: 20110802, end: 20120815
  2. CYMBALTA [Concomitant]
     Indication: DEPRESSION
     Dosage: THE DIVIDED DOSE FREQUENCY IS UNCERTAIN
     Route: 048
     Dates: end: 20110801
  3. CYMBALTA [Concomitant]
     Dosage: THE DIVIDED DOSE FREQUENCY IS UNCERTAIN
     Route: 048
     Dates: start: 20120112
  4. YOKU-KAN-SAN [Concomitant]
     Indication: DEPRESSION
     Dosage: THE DIVIDED DOSE FREQUENCY IS UNCERTAIN
     Route: 048
     Dates: start: 20120524, end: 20120613
  5. SENNOSIDES [Concomitant]
     Indication: CONSTIPATION
     Dosage: THE DIVIDED DOSE FREQUENCY IS UNCERTAIN
     Route: 048

REACTIONS (1)
  - Amnesia [Not Recovered/Not Resolved]
